FAERS Safety Report 16140486 (Version 1)
Quarter: 2019Q2

REPORT INFORMATION
  Report Type: Other
  Country: US (occurrence: US)
  Receive Date: 20190401
  Receipt Date: 20190401
  Transmission Date: 20190711
  Serious: No
  Sender: FDA-Public Use
  Company Number: US-SEPTODONT-201804842

PATIENT
  Sex: Male

DRUGS (2)
  1. 2% LIDOCAINE WITH 1:100,000 EPI (EPINEPHRINE BITARTRATE\LIDOCAINE HYDROCHLORIDE) [Suspect]
     Active Substance: EPINEPHRINE BITARTRATE\LIDOCAINE HYDROCHLORIDE
     Indication: DENTAL LOCAL ANAESTHESIA
     Dosage: IANB TWO CARPS 2% LIDOCAINE WITH 1:100,000 EPI.
     Route: 004
     Dates: start: 20180622
  2. OXYCODONE [Concomitant]
     Active Substance: OXYCODONE
     Indication: BACK PAIN
     Dosage: PATIENT TAKES 10MG OXYCODONE THREE TIMES A DAY

REACTIONS (1)
  - Drug ineffective [Not Recovered/Not Resolved]

NARRATIVE: CASE EVENT DATE: 20180622
